FAERS Safety Report 5320895-7 (Version None)
Quarter: 2007Q2

REPORT INFORMATION
  Report Type: 
  Country: None (occurrence: None)
  Receive Date: 20070504
  Receipt Date: 20070417
  Transmission Date: 20071010
  Serious: Yes (Other)
  Sender: FDA-Public Use
  Company Number: VNL_0428_2007

PATIENT
  Sex: Male

DRUGS (3)
  1. APO-GO (APO-GO) [Suspect]
     Indication: PARKINSON'S DISEASE
     Dosage: 5 MG PER HOUR FOR UNKNOWN SUBCUTANEOUS
     Route: 058
     Dates: start: 20051101
  2. APO-GO (APO-GO) [Suspect]
     Indication: PARKINSON'S DISEASE
     Dosage: 1.5 MG PER HOUR FOR UNKNOWN SUBCUTANEOUS)
     Route: 058
  3. APO-GO (APO-GO) [Suspect]
     Indication: PARKINSON'S DISEASE
     Dosage: 1.5 MG PER HOUR FOR UNKNOWN SUBCUTANEOUS
     Route: 058
     Dates: start: 20060101, end: 20061001

REACTIONS (8)
  - ABNORMAL BEHAVIOUR [None]
  - AGITATION [None]
  - AMNESIA [None]
  - FALL [None]
  - HALLUCINATION [None]
  - INSOMNIA [None]
  - OVERDOSE [None]
  - SCREAMING [None]
